FAERS Safety Report 5487812-0 (Version None)
Quarter: 2007Q3

REPORT INFORMATION
  Report Type: 
  Country: None (occurrence: None)
  Receive Date: 20070925
  Receipt Date: 20070613
  Transmission Date: 20080115
  Serious: No
  Sender: FDA-Public Use
  Company Number: 2007US001187

PATIENT
  Sex: Female

DRUGS (6)
  1. VESICARE [Suspect]
     Indication: URINARY INCONTINENCE
     Dosage: 10 MG, UID/QD
  2. CELEBREX [Concomitant]
  3. SINGULAIR [Concomitant]
  4. POTASSIUM (POTASSIUM CHLORIDE) [Concomitant]
  5. DYAZIDE [Concomitant]
  6. VYTORIN [Concomitant]

REACTIONS (2)
  - DRY MOUTH [None]
  - VISION BLURRED [None]
